FAERS Safety Report 13252626 (Version 1)
Quarter: 2017Q1

REPORT INFORMATION
  Report Type: Report from Study
  Country: US (occurrence: US)
  Receive Date: 20170220
  Receipt Date: 20170220
  Transmission Date: 20170428
  Serious: Yes (Hospitalization)
  Sender: FDA-Public Use
  Company Number: US-IPSEN BIOPHARMACEUTICALS, INC.-2017-00786

PATIENT
  Age: 17 Year
  Sex: Male

DRUGS (9)
  1. NUTROPIN AQ [Suspect]
     Active Substance: SOMATROPIN
     Indication: HYPOPITUITARISM
     Route: 058
  2. HYDROCORTISONE. [Concomitant]
     Active Substance: HYDROCORTISONE
     Route: 048
  3. HYDROCORTISONE. [Concomitant]
     Active Substance: HYDROCORTISONE
     Dosage: AT LUNCH
     Route: 048
  4. DEXTROSE. [Concomitant]
     Active Substance: DEXTROSE
     Dosage: 5% - 0.45%
  5. INSULIN [Concomitant]
     Active Substance: INSULIN NOS
  6. INCRELEX [Suspect]
     Active Substance: MECASERMIN
     Indication: PRODUCT USED FOR UNKNOWN INDICATION
     Dosage: NOT REPORTED
     Route: 058
  7. HYDROCORTISONE. [Concomitant]
     Active Substance: HYDROCORTISONE
     Route: 048
  8. TESTOSTERONE. [Concomitant]
     Active Substance: TESTOSTERONE
  9. LEVOTHYROXINE. [Concomitant]
     Active Substance: LEVOTHYROXINE
     Route: 048

REACTIONS (11)
  - Epistaxis [Unknown]
  - Nausea [Unknown]
  - Dehydration [Unknown]
  - Hypoacusis [Unknown]
  - Fatigue [Unknown]
  - Vomiting [Unknown]
  - Abdominal pain [Unknown]
  - Hypoglycaemia [Unknown]
  - Temperature intolerance [Unknown]
  - Decreased appetite [Unknown]
  - Malaise [Unknown]

NARRATIVE: CASE EVENT DATE: 20161201
